FAERS Safety Report 11446375 (Version 1)
Quarter: 2015Q3

REPORT INFORMATION
  Report Type: Other
  Country: DK (occurrence: DK)
  Receive Date: 20150902
  Receipt Date: 20150902
  Transmission Date: 20151125
  Serious: Yes (Other)
  Sender: FDA-Public Use
  Company Number: DK-MYLANLABS-2015M1029138

PATIENT

DRUGS (2)
  1. AZATHIOPRINE. [Suspect]
     Active Substance: AZATHIOPRINE
     Dosage: UNK
  2. FISH OIL [Interacting]
     Active Substance: FISH OIL
     Dosage: UNK

REACTIONS (2)
  - Drug interaction [Unknown]
  - Intestinal haemorrhage [Unknown]
